FAERS Safety Report 5762262-8 (Version None)
Quarter: 2008Q2

REPORT INFORMATION
  Report Type: 
  Country: None (occurrence: None)
  Receive Date: 20080609
  Receipt Date: 20080602
  Transmission Date: 20081010
  Serious: Yes (Other)
  Sender: FDA-Public Use
  Company Number: EE-ELI_LILLY_AND_COMPANY-EE200710005881

PATIENT
  Age: 36 Year
  Sex: Male

DRUGS (6)
  1. ZYPREXA [Suspect]
     Indication: SCHIZOPHRENIA
     Dosage: 20 MG, DAILY (1/D)
     Route: 065
     Dates: start: 20070401
  2. ZYPREXA [Suspect]
     Dosage: 15 MG, DAILY (1/D)
  3. ZYPREXA [Suspect]
     Dosage: 10 MG, DAILY (1/D)
     Dates: end: 20071001
  4. CYCLODOL [Concomitant]
     Dosage: 2 MG, AS NEEDED
  5. DIAZEPAM [Concomitant]
     Dosage: 5 MG, AS NEEDED
  6. IMOVANE [Concomitant]
     Dosage: 7.5 MG, AS NEEDED

REACTIONS (3)
  - ABDOMINAL PAIN UPPER [None]
  - HEPATITIS C [None]
  - VOMITING [None]
